FAERS Safety Report 5600261-7 (Version None)
Quarter: 2008Q1

REPORT INFORMATION
  Report Type: 
  Country: None (occurrence: None)
  Receive Date: 20080123
  Receipt Date: 20080111
  Transmission Date: 20080703
  Serious: Yes (Death)
  Sender: FDA-Public Use
  Company Number: US-KINGPHARMUSA00001-K200800042

PATIENT

DRUGS (2)
  1. AVINZA [Suspect]
     Indication: BACK DISORDER
     Dosage: 120 MG, QD
     Route: 048
     Dates: start: 20080104, end: 20080109
  2. PERCOCET [Suspect]

REACTIONS (3)
  - DEATH [None]
  - DRUG ABUSE [None]
  - INCORRECT ROUTE OF DRUG ADMINISTRATION [None]
